FAERS Safety Report 8596300-4 (Version None)
Quarter: 2012Q3

REPORT INFORMATION
  Report Type: 
  Country: None (occurrence: None)
  Receive Date: 20120815
  Receipt Date: 20120807
  Transmission Date: 20120928
  Serious: Yes (Hospitalization)
  Sender: FDA-Public Use
  Company Number: HK-ELI_LILLY_AND_COMPANY-HK201208002178

PATIENT
  Sex: Female
  Weight: 68 kg

DRUGS (1)
  1. GEMZAR [Suspect]
     Indication: OVARIAN CANCER
     Dosage: UNK
     Dates: start: 20120208

REACTIONS (2)
  - ASCITES [None]
  - THROMBOCYTOPENIA [None]
